FAERS Safety Report 4910681-1 (Version None)
Quarter: 2006Q1

REPORT INFORMATION
  Report Type: 
  Country: None (occurrence: None)
  Receive Date: 20060214
  Receipt Date: 20051013
  Transmission Date: 20060701
  Serious: Yes (Other)
  Sender: FDA-Public Use
  Company Number: PHBS2005BE15210

PATIENT
  Age: 56 Year
  Sex: Female

DRUGS (5)
  1. ZOMETA [Suspect]
     Indication: METASTASES TO BONE
     Dosage: 4 MG EVERY 4 WEEKS
     Route: 042
     Dates: start: 20030401, end: 20050621
  2. AREDIA [Suspect]
     Indication: METASTASES TO BONE
     Dosage: 90 MG EVERY 4 WEEKS
     Route: 042
     Dates: start: 20000301, end: 20030401
  3. ANTINEOPLASTIC AGENTS [Concomitant]
  4. BONDRONAT [Concomitant]
     Route: 065
     Dates: start: 20050919
  5. CHEMOTHERAPEUTICS,OTHER [Concomitant]
     Route: 065

REACTIONS (2)
  - OSTEONECROSIS [None]
  - PAIN IN JAW [None]
